FAERS Safety Report 15634832 (Version 1)
Quarter: 2018Q4

REPORT INFORMATION
  Report Type: Spontaneous
  Country: CN (occurrence: CN)
  Receive Date: 20181119
  Receipt Date: 20181119
  Transmission Date: 20190205
  Serious: Yes (Death)
  Sender: FDA-Public Use
  Company Number: PHHY2018CN156696

PATIENT
  Age: 67 Year
  Sex: Female

DRUGS (4)
  1. METHOTREXATE. [Suspect]
     Active Substance: METHOTREXATE
     Dosage: 10 MG, UNK
     Route: 037
  2. METHOTREXATE. [Suspect]
     Active Substance: METHOTREXATE
     Indication: RICHTER^S SYNDROME
     Dosage: 6 G, UNK
     Route: 042
  3. DEXAMETHASONE. [Suspect]
     Active Substance: DEXAMETHASONE
     Indication: RICHTER^S SYNDROME
     Dosage: 5 MG, UNK
     Route: 037
  4. CYTARABINE. [Suspect]
     Active Substance: CYTARABINE
     Indication: RICHTER^S SYNDROME
     Dosage: 50 MG, UNK
     Route: 037

REACTIONS (7)
  - Hemiparesis [Fatal]
  - Richter^s syndrome [Fatal]
  - Pyrexia [Fatal]
  - Product use in unapproved indication [Unknown]
  - Confusional state [Fatal]
  - Headache [Fatal]
  - Malignant neoplasm progression [Fatal]
